FAERS Safety Report 8167007-2 (Version None)
Quarter: 2012Q1

REPORT INFORMATION
  Report Type: 
  Country: None (occurrence: None)
  Receive Date: 20120227
  Receipt Date: 20120215
  Transmission Date: 20120608
  Serious: Yes (Other)
  Sender: FDA-Public Use
  Company Number: US-JNJFOC-20120208677

PATIENT
  Sex: Male
  Weight: 2.6 kg

DRUGS (1)
  1. TOPAMAX [Suspect]
     Indication: FOETAL EXPOSURE DURING PREGNANCY
     Route: 064
     Dates: start: 20100901, end: 20110501

REACTIONS (3)
  - PREMATURE BABY [None]
  - LOW BIRTH WEIGHT BABY [None]
  - EXPOSURE DURING BREAST FEEDING [None]
